FAERS Safety Report 21977194 (Version 1)
Quarter: 2023Q1

REPORT INFORMATION
  Report Type: Spontaneous
  Country: US (occurrence: None)
  Receive Date: 20230208
  Receipt Date: 20230208
  Transmission Date: 20230418
  Serious: Yes (Hospitalization, Other)
  Sender: FDA-Public Use
  Company Number: None

PATIENT
  Age: 75 Year
  Sex: Male

DRUGS (1)
  1. CAPECITABINE [Suspect]
     Active Substance: CAPECITABINE
     Dosage: FREQUENCY : DAILY;?
     Route: 048
     Dates: start: 20221224

REACTIONS (6)
  - Rash [None]
  - Asthenia [None]
  - Pleurisy [None]
  - Joint swelling [None]
  - Movement disorder [None]
  - Rash [None]

NARRATIVE: CASE EVENT DATE: 20230110
